FAERS Safety Report 12236650 (Version 1)
Quarter: 2016Q2

REPORT INFORMATION
  Report Type: Spontaneous
  Country: US (occurrence: US)
  Receive Date: 20160405
  Receipt Date: 20160405
  Transmission Date: 20160815
  Serious: No
  Sender: FDA-Public Use
  Company Number: US-JNJFOC-20160324787

PATIENT
  Age: 58 Year
  Sex: Male

DRUGS (3)
  1. DIOVAN HCT [Concomitant]
     Active Substance: HYDROCHLOROTHIAZIDE\VALSARTAN
     Indication: HYPERTENSION
     Route: 048
  2. INVOKAMET [Suspect]
     Active Substance: CANAGLIFLOZIN\METFORMIN HYDROCHLORIDE
     Indication: DIABETES MELLITUS
     Dosage: 150/1000 (UNITS UNSPECIFIED)
     Route: 048
  3. INVOKAMET [Suspect]
     Active Substance: CANAGLIFLOZIN\METFORMIN HYDROCHLORIDE
     Indication: DIABETES MELLITUS
     Dosage: 50/1000 (UNITS UNSPECIFIED)
     Route: 048

REACTIONS (3)
  - Abdominal discomfort [Recovered/Resolved]
  - Drug prescribing error [Unknown]
  - Off label use [Unknown]
